FAERS Safety Report 11309271 (Version 1)
Quarter: 2015Q3

REPORT INFORMATION
  Report Type: Spontaneous
  Country: US (occurrence: US)
  Receive Date: 20150724
  Receipt Date: 20150724
  Transmission Date: 20151125
  Serious: No
  Sender: FDA-Public Use
  Company Number: US-ABBVIE-14P-163-1264687-00

PATIENT

DRUGS (2)
  1. LEVOTHYROXINE. [Suspect]
     Active Substance: LEVOTHYROXINE
     Indication: PRODUCT USED FOR UNKNOWN INDICATION
  2. SYNTHROID [Suspect]
     Active Substance: LEVOTHYROXINE SODIUM
     Indication: PRODUCT USED FOR UNKNOWN INDICATION

REACTIONS (8)
  - Dizziness [Unknown]
  - Hyperhidrosis [Unknown]
  - Pyrexia [Unknown]
  - Neck pain [Unknown]
  - Malaise [Unknown]
  - Breast discomfort [Unknown]
  - Poor quality drug administered [Unknown]
  - Alopecia [Unknown]

NARRATIVE: CASE EVENT DATE: 201404
